FAERS Safety Report 11098322 (Version 10)
Quarter: 2016Q2

REPORT INFORMATION
  Report Type: Report from Study
  Country: KR (occurrence: KR)
  Receive Date: 20150507
  Receipt Date: 20160428
  Transmission Date: 20160815
  Serious: Yes (Hospitalization, Other)
  Sender: FDA-Public Use
  Company Number: KR-GILEAD-2015-0151672

PATIENT
  Age: 68 Year
  Sex: Female
  Weight: 45.4 kg

DRUGS (39)
  1. PANTOLOC                           /01263204/ [Concomitant]
     Active Substance: PANTOPRAZOLE SODIUM
     Dosage: UNK
     Route: 048
     Dates: start: 20140516
  2. PRIMALAN [Concomitant]
     Active Substance: MEQUITAZINE
     Indication: PRURITUS
     Dosage: UNK
     Route: 054
     Dates: start: 20140526, end: 20140802
  3. GALVUS [Concomitant]
     Active Substance: VILDAGLIPTIN
     Indication: DIABETES MELLITUS
     Dosage: 100 MG, QD
     Route: 048
     Dates: start: 20150417
  4. AMARYL [Concomitant]
     Active Substance: GLIMEPIRIDE
     Indication: DIABETES MELLITUS
     Dosage: 2 MG, BID
     Route: 048
     Dates: start: 20150418
  5. FRAVASOL [Concomitant]
     Indication: PROPHYLAXIS
     Dosage: 8.5 %, UNK
     Dates: start: 20150125, end: 20150125
  6. NICETILE [Concomitant]
     Active Substance: ACETYLCARNITINE HYDROCHLORIDE
     Indication: CEREBRAL INFARCTION
     Dosage: 500 MG, BID
     Route: 048
     Dates: start: 20150419
  7. GASMOTIN [Concomitant]
     Active Substance: MOSAPRIDE CITRATE
     Indication: DYSPEPSIA
     Dosage: 5 MG, TID
     Route: 048
     Dates: start: 20140509
  8. AMICETA [Concomitant]
     Indication: PANCREATITIS
     Dosage: 325 MG, UNK
     Route: 048
     Dates: start: 20150105, end: 20150123
  9. ALGIRON [Concomitant]
     Dosage: UNK
     Route: 048
     Dates: start: 20140505, end: 20140714
  10. DIABEX [Concomitant]
     Active Substance: METFORMIN HYDROCHLORIDE
     Dosage: UNK
     Route: 048
     Dates: start: 20140813
  11. RABIET [Concomitant]
     Indication: GASTROOESOPHAGEAL REFLUX DISEASE
     Dosage: UNK
     Route: 048
     Dates: start: 20140714, end: 20150205
  12. XYZAL [Concomitant]
     Active Substance: LEVOCETIRIZINE DIHYDROCHLORIDE
     Indication: RHINITIS ALLERGIC
     Dosage: UNK
     Route: 048
     Dates: start: 20140616, end: 20150506
  13. LIPITOR [Concomitant]
     Active Substance: ATORVASTATIN CALCIUM
     Indication: HYPERLIPIDAEMIA
     Dosage: 20 MG, UNK
     Route: 048
     Dates: start: 20150422
  14. LAMINA-G [Concomitant]
     Indication: GASTROOESOPHAGEAL REFLUX DISEASE
     Dosage: 20 ML, TID
     Dates: start: 20150126
  15. STILNOX [Concomitant]
     Active Substance: ZOLPIDEM TARTRATE
     Indication: INSOMNIA
     Dosage: 6.25 MG, QD
     Route: 048
     Dates: start: 20150127
  16. DIABEX [Concomitant]
     Active Substance: METFORMIN HYDROCHLORIDE
     Indication: DIABETES MELLITUS
     Dosage: 1000 MG, QD
     Route: 048
     Dates: start: 20150421
  17. AMODIPIN [Concomitant]
     Indication: HYPERTENSION
     Dosage: UNK
     Route: 048
     Dates: start: 20140813
  18. COZARTAN [Concomitant]
     Indication: HYPERTENSION
     Dosage: UNK
     Route: 048
     Dates: start: 20140813, end: 20150122
  19. TENOFOVIR DISOPROXIL FUMARATE. [Suspect]
     Active Substance: TENOFOVIR DISOPROXIL FUMARATE
     Indication: CHRONIC HEPATITIS B
     Dosage: 300 MG, QD
     Route: 048
     Dates: start: 20140616
  20. FLURAZEPAM [Concomitant]
     Active Substance: FLURAZEPAM\FLURAZEPAM HYDROCHLORIDE
     Indication: INSOMNIA
     Dosage: 15 MG, QD
     Dates: start: 20150206
  21. TRESTAN                            /00056201/ [Concomitant]
     Indication: DECREASED APPETITE
     Dosage: UNK, BID
     Route: 048
     Dates: start: 20150127, end: 20150128
  22. MACPERA [Concomitant]
     Indication: NAUSEA
     Dosage: 5 MG, UNK
     Route: 048
     Dates: start: 20140124
  23. PENIRAMIN [Concomitant]
     Indication: RHINITIS ALLERGIC
     Dosage: 2 MG, QD
     Route: 042
     Dates: start: 20150124, end: 20150127
  24. ULTRACET [Concomitant]
     Active Substance: ACETAMINOPHEN\TRAMADOL HYDROCHLORIDE
     Indication: PANCREATITIS
     Dosage: UNK
     Route: 048
     Dates: start: 20140917, end: 20150107
  25. GEL 2 [Concomitant]
     Indication: GASTROOESOPHAGEAL REFLUX DISEASE
     Dosage: UNK, QD
     Route: 048
     Dates: start: 20150417
  26. GRANDPAZE S [Concomitant]
     Indication: DYSPEPSIA
     Dosage: UNK
     Route: 054
     Dates: start: 20141208, end: 20150104
  27. NEXIUM [Concomitant]
     Active Substance: ESOMEPRAZOLE MAGNESIUM
     Indication: GASTROOESOPHAGEAL REFLUX DISEASE
     Dosage: 40 MG, QD
     Route: 048
     Dates: start: 20150123, end: 20150205
  28. TALION                             /01587402/ [Concomitant]
     Active Substance: BEPOTASTINE
     Indication: PRURITUS
     Dosage: 10 MG, BID
     Route: 048
     Dates: start: 20140917, end: 20140924
  29. ALDACTONE [Concomitant]
     Active Substance: SPIRONOLACTONE
     Indication: ASCITES
     Dosage: UNK
     Route: 048
     Dates: start: 20140508, end: 20140714
  30. PLETAAL [Concomitant]
     Active Substance: CILOSTAZOL
     Indication: CEREBRAL INFARCTION
     Dosage: 100 MG, BID
     Dates: start: 20150422
  31. COZAAR [Concomitant]
     Active Substance: LOSARTAN POTASSIUM
     Indication: HYPERTENSION
     Dosage: 50 MG, QD
     Route: 048
     Dates: start: 20150123
  32. MUCOSTA [Concomitant]
     Active Substance: REBAMIPIDE
     Indication: GASTROOESOPHAGEAL REFLUX DISEASE
     Dosage: 100 MG, TID
     Dates: start: 20150126
  33. LIDOMEX [Concomitant]
     Active Substance: PREDNISOLONE VALERATE ACETATE
     Indication: PRURITUS
     Dosage: 0.3 %, UNK
     Route: 061
     Dates: start: 20140917
  34. PANTOLOC                           /01263204/ [Concomitant]
     Active Substance: PANTOPRAZOLE SODIUM
     Indication: GASTROOESOPHAGEAL REFLUX DISEASE
     Dosage: 20 MG, QD
     Route: 048
     Dates: start: 20150419
  35. MEGESTROL ACETATE. [Concomitant]
     Active Substance: MEGESTROL ACETATE
     Indication: DECREASED APPETITE
     Dosage: UNK
     Dates: start: 20140522, end: 20140717
  36. LANSTON [Concomitant]
     Active Substance: LANSOPRAZOLE
     Indication: PROPHYLAXIS AGAINST GASTROINTESTINAL ULCER
     Dosage: 15 MG, UNK
     Route: 048
     Dates: start: 20150327, end: 20150403
  37. DESOWEN [Concomitant]
     Active Substance: DESONIDE
     Indication: PRURITUS
     Dosage: UNK
     Dates: start: 20140526
  38. MEGEROL [Concomitant]
     Indication: DECREASED APPETITE
     Dosage: 40 ML, QD
     Route: 048
     Dates: start: 20140124
  39. MG TNA [Concomitant]
     Indication: PROPHYLAXIS
     Dosage: 960 ML, UNK
     Dates: start: 20150126, end: 20150126

REACTIONS (10)
  - Postictal state [Recovered/Resolved]
  - Urinary tract infection [Recovered/Resolved]
  - Seizure [Recovered/Resolved]
  - Cerebral infarction [Recovering/Resolving]
  - Eye movement disorder [Recovered/Resolved]
  - Osteoporosis [Not Recovered/Not Resolved]
  - Seizure [Recovered/Resolved]
  - Humerus fracture [Unknown]
  - Metabolic encephalopathy [Recovered/Resolved]
  - Osteoarthritis [Not Recovered/Not Resolved]

NARRATIVE: CASE EVENT DATE: 20150327
